FAERS Safety Report 9825235 (Version 1)
Quarter: 2014Q1

REPORT INFORMATION
  Report Type: Spontaneous
  Country: US (occurrence: US)
  Receive Date: 20140117
  Receipt Date: 20140117
  Transmission Date: 20141002
  Serious: Yes (Hospitalization)
  Sender: FDA-Public Use
  Company Number: US-BAYER-2014-006663

PATIENT
  Age: 18 Year
  Sex: Female
  Weight: 58.96 kg

DRUGS (5)
  1. YAZ [Suspect]
  2. YASMIN [Suspect]
  3. OXYCODONE [Concomitant]
     Indication: PROCEDURAL PAIN
  4. DILAUDID [Concomitant]
  5. MORPHINE [Concomitant]
     Indication: PAIN MANAGEMENT

REACTIONS (1)
  - Pulmonary embolism [None]
